FAERS Safety Report 5409280-7 (Version None)
Quarter: 2007Q3

REPORT INFORMATION
  Report Type: 
  Country: None (occurrence: None)
  Receive Date: 20070809
  Receipt Date: 20070801
  Transmission Date: 20080115
  Serious: Yes (Hospitalization, Other)
  Sender: FDA-Public Use
  Company Number: PHMT2007CA01456

PATIENT
  Age: 19 Year
  Sex: Male
  Weight: 97.5 kg

DRUGS (5)
  1. CLOZARIL [Suspect]
     Indication: SCHIZOAFFECTIVE DISORDER
     Dosage: 600MG
     Route: 048
     Dates: start: 20060712, end: 20070617
  2. CLOZARIL [Suspect]
     Dosage: 400MG QHS
     Route: 048
  3. VENLAFAXINE HCL [Concomitant]
  4. BUPROPION HCL [Concomitant]
  5. LIOTHYRONINE [Concomitant]

REACTIONS (11)
  - BLOOD ALKALINE PHOSPHATASE INCREASED [None]
  - BLOOD CHOLESTEROL INCREASED [None]
  - BLOOD TRIGLYCERIDES INCREASED [None]
  - GLYCOSYLATED HAEMOGLOBIN INCREASED [None]
  - HEPATIC STEATOSIS [None]
  - HYPERTENSION [None]
  - LEFT VENTRICULAR HYPERTROPHY [None]
  - LIVER FUNCTION TEST ABNORMAL [None]
  - METABOLIC SYNDROME [None]
  - TACHYCARDIA [None]
  - WEIGHT INCREASED [None]
